FAERS Safety Report 8510475-4 (Version None)
Quarter: 2012Q3

REPORT INFORMATION
  Report Type: 
  Country: None (occurrence: None)
  Receive Date: 20120715
  Receipt Date: 20120705
  Transmission Date: 20120928
  Serious: Yes (Other)
  Sender: FDA-Public Use
  Company Number: PHHY2012IT059909

PATIENT
  Sex: Male

DRUGS (1)
  1. METHOTREXATE [Suspect]
     Indication: PSORIASIS
     Dosage: 5 MG WEEKLY DOSE
     Route: 030
     Dates: start: 20110914, end: 20120603

REACTIONS (5)
  - HAEMOLYSIS [None]
  - THROMBOCYTOPENIA [None]
  - LIVER FUNCTION TEST ABNORMAL [None]
  - ANAEMIA [None]
  - LEUKOPENIA [None]
